FAERS Safety Report 19225705 (Version 3)
Quarter: 2024Q4

REPORT INFORMATION
  Report Type: Report from Study
  Country: US (occurrence: US)
  Receive Date: 20210506
  Receipt Date: 20241217
  Transmission Date: 20250115
  Serious: Yes (Other)
  Sender: TAKEDA
  Company Number: US-TAKEDA-US201912107

PATIENT
  Age: 74 Year
  Sex: Female

DRUGS (3)
  1. HUMAN IMMUNOGLOBULIN G [Suspect]
     Active Substance: HUMAN IMMUNOGLOBULIN G
     Indication: Primary immunodeficiency syndrome
     Dosage: 8 GRAM, 1/WEEK
  2. HUMAN IMMUNOGLOBULIN G [Suspect]
     Active Substance: HUMAN IMMUNOGLOBULIN G
     Dosage: 10 GRAM, 1/WEEK
  3. HUMAN IMMUNOGLOBULIN G [Suspect]
     Active Substance: HUMAN IMMUNOGLOBULIN G
     Dosage: UNK

REACTIONS (8)
  - Pneumonia staphylococcal [Unknown]
  - Pneumonia pseudomonal [Unknown]
  - Device related infection [Unknown]
  - Upper limb fracture [Unknown]
  - Fall [Unknown]
  - Needle issue [Unknown]
  - Night sweats [Unknown]
  - Oedema [Unknown]

NARRATIVE: CASE EVENT DATE: 20190228
